FAERS Safety Report 14837232 (Version 1)
Quarter: 2018Q2

REPORT INFORMATION
  Report Type: Spontaneous
  Country: IT (occurrence: IT)
  Receive Date: 20180502
  Receipt Date: 20180502
  Transmission Date: 20180711
  Serious: Yes (Other)
  Sender: FDA-Public Use
  Company Number: IT-JNJFOC-20180433390

PATIENT
  Age: 66 Year
  Sex: Female

DRUGS (2)
  1. OLANZAPINA ACTAVIS [Suspect]
     Active Substance: OLANZAPINE
     Indication: PRODUCT USED FOR UNKNOWN INDICATION
     Route: 048
     Dates: start: 20180424, end: 20180424
  2. HALDOL [Suspect]
     Active Substance: HALOPERIDOL
     Indication: PRODUCT USED FOR UNKNOWN INDICATION
     Route: 048
     Dates: start: 20180424, end: 20180424

REACTIONS (4)
  - Coma [Unknown]
  - Intentional self-injury [Unknown]
  - Intentional product misuse [Unknown]
  - Tachycardia [Unknown]

NARRATIVE: CASE EVENT DATE: 20180424
